FAERS Safety Report 8453730-9 (Version None)
Quarter: 2012Q2

REPORT INFORMATION
  Report Type: 
  Country: None (occurrence: None)
  Receive Date: 20120620
  Receipt Date: 20120615
  Transmission Date: 20120825
  Serious: Yes (Life-Threatening, Hospitalization, Other)
  Sender: FDA-Public Use
  Company Number: DE-ACTELION-A-US2010-36860

PATIENT

DRUGS (11)
  1. VENTAVIS [Suspect]
     Indication: PULMONARY ARTERIAL HYPERTENSION
     Dosage: 2.5 UG, 6 X DAY
     Route: 055
     Dates: start: 20091209
  2. SILDENAFIL [Concomitant]
  3. ENOXAPARIN SODIUM [Concomitant]
  4. HEPARIN [Concomitant]
  5. VENTAVIS [Suspect]
     Dosage: 10 UG, 4 X DAY
     Route: 055
  6. MARCUMAR [Concomitant]
  7. HYDROCHLOROTHIAZIDE [Concomitant]
  8. SITAXSENTAN [Concomitant]
  9. PIPERACILLIN AND TAZOBACTAM [Concomitant]
  10. VENTAVIS [Suspect]
     Dosage: 10 UG, 6 X DAY
     Route: 055
  11. TORSEMIDE [Concomitant]

REACTIONS (15)
  - MUSCLE HAEMORRHAGE [None]
  - HEADACHE [None]
  - DEPRESSION [None]
  - MECHANICAL ILEUS [None]
  - ABDOMINAL HERNIA OBSTRUCTIVE [None]
  - CEREBROVASCULAR ACCIDENT [None]
  - POSTOPERATIVE ILEUS [None]
  - RENAL FAILURE ACUTE [None]
  - HAEMATOCHEZIA [None]
  - HEMIANOPIA [None]
  - ANAL FISSURE [None]
  - ABDOMINAL PAIN UPPER [None]
  - FUNGAEMIA [None]
  - REHABILITATION THERAPY [None]
  - DEVICE RELATED INFECTION [None]
